FAERS Safety Report 5511642-4 (Version None)
Quarter: 2007Q4

REPORT INFORMATION
  Report Type: 
  Country: None (occurrence: None)
  Receive Date: 20071109
  Receipt Date: 20071031
  Transmission Date: 20080405
  Serious: Yes (Other)
  Sender: FDA-Public Use
  Company Number: JP-PFIZER INC-2007040446

PATIENT
  Sex: Female

DRUGS (5)
  1. ZOLOFT [Suspect]
     Indication: DEPRESSION
     Dosage: DAILY DOSE:50MG
     Route: 048
  2. DOGMATYL [Concomitant]
     Route: 048
  3. RESMIT [Concomitant]
     Route: 048
  4. BROTIZOLAM [Concomitant]
     Route: 048
  5. PROMAC /JPN/ [Concomitant]
     Route: 048

REACTIONS (2)
  - DEPRESSION [None]
  - IDIOPATHIC THROMBOCYTOPENIC PURPURA [None]
